FAERS Safety Report 4992423-7 (Version None)
Quarter: 2006Q1

REPORT INFORMATION
  Report Type: 
  Country: None (occurrence: None)
  Receive Date: 20060315
  Receipt Date: 20050427
  Transmission Date: 20060701
  Serious: Yes (Other)
  Sender: FDA-Public Use
  Company Number: USA050494703

PATIENT
  Age: 66 Year
  Sex: Female
  Weight: 60.9 kg

DRUGS (2)
  1. GEMZAR [Suspect]
     Indication: PANCREATIC CARCINOMA
     Dosage: 1650
  2. TAXOTERE [Concomitant]

REACTIONS (1)
  - PULMONARY TOXICITY [None]
